FAERS Safety Report 5733100-4 (Version None)
Quarter: 2008Q2

REPORT INFORMATION
  Report Type: 
  Country: None (occurrence: None)
  Receive Date: 20080509
  Receipt Date: 20080501
  Transmission Date: 20081010
  Serious: Yes (Other)
  Sender: FDA-Public Use
  Company Number: US-BAYER-200817916GPV

PATIENT
  Age: 62 Year
  Sex: Male

DRUGS (5)
  1. NEXAVAR [Suspect]
     Indication: METASTATIC RENAL CELL CARCINOMA
     Route: 048
     Dates: start: 20080408
  2. NEXAVAR [Suspect]
     Route: 048
     Dates: start: 20071120, end: 20080308
  3. AMG 386 OR PLACEBO [Suspect]
     Indication: METASTATIC RENAL CELL CARCINOMA
     Route: 042
     Dates: start: 20080401
  4. AMG 386 OR PLACEBO [Suspect]
     Route: 042
     Dates: start: 20071120
  5. ANTIHYPERTENSIVES [Concomitant]
     Indication: HYPERTENSION
     Route: 065

REACTIONS (1)
  - VISUAL ACUITY REDUCED [None]
